FAERS Safety Report 17203501 (Version 1)
Quarter: 2019Q4

REPORT INFORMATION
  Report Type: Report from Study
  Country: RU (occurrence: RU)
  Receive Date: 20191226
  Receipt Date: 20191226
  Transmission Date: 20200122
  Serious: Yes (Other)
  Sender: FDA-Public Use
  Company Number: PHHY2019RU219832

PATIENT
  Age: 52 Year
  Sex: Female

DRUGS (1)
  1. TASIGNA [Suspect]
     Active Substance: NILOTINIB
     Indication: PRODUCT USED FOR UNKNOWN INDICATION
     Dosage: UNK
     Route: 065

REACTIONS (9)
  - Blood cholesterol increased [Unknown]
  - Blood triglycerides increased [Unknown]
  - High density lipoprotein increased [Unknown]
  - Low density lipoprotein increased [Unknown]
  - Electrocardiogram QT prolonged [Unknown]
  - Very low density lipoprotein increased [Unknown]
  - High density lipoprotein decreased [Unknown]
  - Total cholesterol/HDL ratio decreased [Unknown]
  - Defect conduction intraventricular [Unknown]

NARRATIVE: CASE EVENT DATE: 20190116
